FAERS Safety Report 5119852-5 (Version None)
Quarter: 2006Q3

REPORT INFORMATION
  Report Type: 
  Country: None (occurrence: None)
  Receive Date: 20060927
  Receipt Date: 20060925
  Transmission Date: 20061208
  Serious: Yes (Hospitalization, Other)
  Sender: FDA-Public Use
  Company Number: HQWYE640018NOV05

PATIENT
  Age: 17 Year
  Sex: Female
  Weight: 80.2 kg

DRUGS (22)
  1. RAPAMUNE [Suspect]
     Indication: PROPHYLAXIS AGAINST TRANSPLANT REJECTION
     Dosage: SEE IMAGE
     Route: 048
     Dates: start: 20051004, end: 20051115
  2. RAPAMUNE [Suspect]
     Indication: PROPHYLAXIS AGAINST TRANSPLANT REJECTION
     Dosage: SEE IMAGE
     Route: 048
     Dates: start: 20051116, end: 20051116
  3. RAPAMUNE [Suspect]
     Indication: PROPHYLAXIS AGAINST TRANSPLANT REJECTION
     Dosage: SEE IMAGE
     Route: 048
     Dates: start: 20051117
  4. MYCOPHENOLATE MOFETIL [Suspect]
     Indication: PROPHYLAXIS AGAINST TRANSPLANT REJECTION
     Dosage: SEE IMAGE
     Route: 048
     Dates: end: 20041101
  5. MYCOPHENOLATE MOFETIL [Suspect]
     Indication: PROPHYLAXIS AGAINST TRANSPLANT REJECTION
     Dosage: SEE IMAGE
     Route: 048
     Dates: start: 20051101, end: 20051101
  6. MYCOPHENOLATE MOFETIL [Suspect]
     Indication: PROPHYLAXIS AGAINST TRANSPLANT REJECTION
     Dosage: SEE IMAGE
     Route: 048
     Dates: start: 20051128, end: 20051129
  7. PREDNISONE TAB [Concomitant]
     Indication: PROPHYLAXIS AGAINST TRANSPLANT REJECTION
     Dosage: 25 MG 1X PER 1 DAY
  8. THYMOGLOBULIN [Suspect]
     Indication: PROPHYLAXIS AGAINST TRANSPLANT REJECTION
     Dosage: SEE IMAGE
     Dates: start: 20051117, end: 20051121
  9. THYMOGLOBULIN [Suspect]
     Indication: PROPHYLAXIS AGAINST TRANSPLANT REJECTION
     Dosage: SEE IMAGE
     Dates: start: 20051123
  10. UNSPECIFIED THYROID MEDICATION (UNSPECIFIED THYROID MEDICATION) [Concomitant]
  11. LASIX [Concomitant]
  12. ENALAPRIL MALEATE [Concomitant]
  13. NORVASC [Concomitant]
  14. ROCALTROL [Concomitant]
  15. SYNTHROID [Concomitant]
  16. LIPITOR [Concomitant]
  17. FERROUS SULFATE TAB [Concomitant]
  18. K-PHOS (POTASSIUM PHOSPHATE MONOBASIC) [Concomitant]
  19. ZANTAC [Concomitant]
  20. NYSTATIN [Concomitant]
  21. SEPTRA DS [Concomitant]
  22. VALCYTE [Concomitant]

REACTIONS (6)
  - DRUG LEVEL BELOW THERAPEUTIC [None]
  - IMMUNOSUPPRESSANT DRUG LEVEL DECREASED [None]
  - KIDNEY TRANSPLANT REJECTION [None]
  - LEUKOPENIA [None]
  - PYREXIA [None]
  - WEIGHT INCREASED [None]
